FAERS Safety Report 16306433 (Version 2)
Quarter: 2019Q2

REPORT INFORMATION
  Report Type: Spontaneous
  Country: CZ (occurrence: CZ)
  Receive Date: 20190513
  Receipt Date: 20190627
  Transmission Date: 20190711
  Serious: Yes (Other)
  Sender: FDA-Public Use
  Company Number: CZ-JNJFOC-20190510605

PATIENT
  Age: 18 Year
  Sex: Female

DRUGS (6)
  1. ADRENALINE [Concomitant]
     Active Substance: EPINEPHRINE
     Dosage: EVERY 3 TO 5 MINUTES
     Route: 065
  2. NORCURON [Concomitant]
     Active Substance: VECURONIUM BROMIDE
     Indication: PRODUCT USED FOR UNKNOWN INDICATION
     Route: 065
  3. NORADRENALIN [Concomitant]
     Active Substance: NOREPINEPHRINE\NOREPINEPHRINE BITARTRATE
     Indication: PRODUCT USED FOR UNKNOWN INDICATION
     Route: 065
  4. MIDAZOLAM [Concomitant]
     Active Substance: MIDAZOLAM HYDROCHLORIDE
     Indication: PRODUCT USED FOR UNKNOWN INDICATION
     Route: 065
  5. FENTANYL UNSPECIFIED [Suspect]
     Active Substance: FENTANYL
     Indication: PRODUCT USED FOR UNKNOWN INDICATION
     Route: 065
  6. ADRENALINE [Concomitant]
     Active Substance: EPINEPHRINE
     Indication: PRODUCT USED FOR UNKNOWN INDICATION
     Route: 065

REACTIONS (6)
  - Chest pain [Unknown]
  - Amnesia [Unknown]
  - Upper respiratory tract infection bacterial [Unknown]
  - Hypokalaemia [Recovering/Resolving]
  - Hypotension [Unknown]
  - Troponin I increased [Unknown]
